FAERS Safety Report 5564519-2 (Version None)
Quarter: 2007Q4

REPORT INFORMATION
  Report Type: 
  Country: None (occurrence: None)
  Receive Date: 20071212
  Receipt Date: 20071127
  Transmission Date: 20080405
  Serious: Yes (Death)
  Sender: FDA-Public Use
  Company Number: S07-USA-06024-01

PATIENT
  Age: 45 Year
  Sex: Female

DRUGS (7)
  1. CELEXA [Suspect]
     Dates: end: 20070928
  2. CYMBALTA [Suspect]
     Dates: end: 20070928
  3. IBUPROFEN [Concomitant]
  4. DEXTROMETHORPHAN HYDROBROMIDE [Concomitant]
  5. DIPHENHYDRAMINE HCL [Concomitant]
  6. CHLORPHENIRAMINE MALEATE [Concomitant]
  7. ALCOHOL [Suspect]
     Dates: end: 20070928

REACTIONS (6)
  - ACCIDENT [None]
  - ALCOHOL POISONING [None]
  - ASPHYXIA [None]
  - CONVERSION DISORDER [None]
  - LOSS OF CONSCIOUSNESS [None]
  - SCREAMING [None]
